FAERS Safety Report 5263822-3 (Version None)
Quarter: 2007Q1

REPORT INFORMATION
  Report Type: 
  Country: None (occurrence: None)
  Receive Date: 20070313
  Receipt Date: 20070305
  Transmission Date: 20070707
  Serious: Yes (Death, Hospitalization)
  Sender: FDA-Public Use
  Company Number: CZ-GLAXOSMITHKLINE-B0441263A

PATIENT
  Age: 60 Year
  Sex: Male
  Weight: 101 kg

DRUGS (2)
  1. ROSIGLITAZONE [Suspect]
     Dosage: 4MG PER DAY
     Route: 048
     Dates: start: 20030423
  2. METFORMIN HCL [Concomitant]
     Route: 048
     Dates: start: 20020724

REACTIONS (5)
  - BLISTER [None]
  - BURNS SECOND DEGREE [None]
  - CARDIAC FAILURE ACUTE [None]
  - ERYTHEMA [None]
  - THERMAL BURN [None]
